FAERS Safety Report 4609987-5 (Version None)
Quarter: 2005Q1

REPORT INFORMATION
  Report Type: 
  Country: None (occurrence: None)
  Receive Date: 20050316
  Receipt Date: 20050310
  Transmission Date: 20050727
  Serious: Yes (Other)
  Sender: FDA-Public Use
  Company Number: PHBS2005JP03597

PATIENT
  Age: 46 Year
  Sex: Female

DRUGS (6)
  1. TOLEDOMIN [Concomitant]
  2. REMICUT [Concomitant]
  3. MYSLEE [Concomitant]
  4. GASMOTIN [Concomitant]
  5. LAMISIL [Suspect]
     Indication: NAIL TINEA
     Dosage: 125 MG/D
     Route: 048
     Dates: start: 20040703, end: 20050111
  6. LAMISIL [Suspect]
     Dosage: 250 MG/D
     Route: 048
     Dates: start: 20050112, end: 20050201

REACTIONS (8)
  - ALANINE AMINOTRANSFERASE INCREASED [None]
  - ASPARTATE AMINOTRANSFERASE INCREASED [None]
  - BLOOD ALKALINE PHOSPHATASE INCREASED [None]
  - BLOOD LACTATE DEHYDROGENASE INCREASED [None]
  - GAMMA-GLUTAMYLTRANSFERASE INCREASED [None]
  - HEPATIC FUNCTION ABNORMAL [None]
  - HEPATITIS C ANTIBODY POSITIVE [None]
  - MEDICATION ERROR [None]
